FAERS Safety Report 23063407 (Version 2)
Quarter: 2023Q4

REPORT INFORMATION
  Report Type: Spontaneous
  Country: US (occurrence: US)
  Receive Date: 20231013
  Receipt Date: 20231222
  Transmission Date: 20240110
  Serious: Yes (Life-Threatening, Hospitalization, Other)
  Sender: FDA-Public Use
  Company Number: US-OTSUKA-2023_026221

PATIENT
  Age: 23 Year
  Sex: Female
  Weight: 80 kg

DRUGS (5)
  1. ABILIFY [Suspect]
     Active Substance: ARIPIPRAZOLE
     Indication: Depression
     Dosage: UNK
     Route: 048
     Dates: start: 2011
  2. HYDROXYZINE [Concomitant]
     Active Substance: HYDROXYZINE HYDROCHLORIDE
     Indication: Product used for unknown indication
     Dosage: UNK
     Route: 065
  3. LORAZEPAM [Concomitant]
     Active Substance: LORAZEPAM
     Indication: Product used for unknown indication
     Dosage: UNK
     Route: 065
  4. WELLBUTRIN [Concomitant]
     Active Substance: BUPROPION HYDROCHLORIDE
     Indication: Depression
     Dosage: UNK
     Route: 048
     Dates: start: 2011
  5. VIVITROL [Concomitant]
     Active Substance: NALTREXONE
     Indication: Depression
     Dosage: 380 MG
     Route: 048

REACTIONS (11)
  - Depression [Not Recovered/Not Resolved]
  - Schizoaffective disorder [Unknown]
  - Alcoholism [Not Recovered/Not Resolved]
  - Intentional self-injury [Unknown]
  - Suicide attempt [Recovered/Resolved]
  - Suicidal ideation [Not Recovered/Not Resolved]
  - Suicidal ideation [Recovered/Resolved]
  - Alcohol abuse [Not Recovered/Not Resolved]
  - Disorder of sex development [Unknown]
  - Tachycardia [Unknown]
  - Anxiety [Not Recovered/Not Resolved]

NARRATIVE: CASE EVENT DATE: 20140101
